FAERS Safety Report 11587165 (Version 1)
Quarter: 2015Q3

REPORT INFORMATION
  Report Type: Spontaneous
  Country: US (occurrence: US)
  Receive Date: 20150916
  Receipt Date: 20150916
  Transmission Date: 20151125
  Serious: No
  Sender: FDA-Public Use
  Company Number: US-ELI_LILLY_AND_COMPANY-US200802002211

PATIENT
  Sex: Female

DRUGS (9)
  1. TAGAMET [Concomitant]
     Active Substance: CIMETIDINE
  2. SYNTHROID [Concomitant]
     Active Substance: LEVOTHYROXINE SODIUM
  3. ASPIRIN. [Concomitant]
     Active Substance: ASPIRIN
  4. FORTEO [Suspect]
     Active Substance: TERIPARATIDE
     Dosage: UNK, UNK
     Dates: start: 200408
  5. LISINOPRIL. [Concomitant]
     Active Substance: LISINOPRIL
  6. TETRACYCLINE [Concomitant]
     Active Substance: TETRACYCLINE
  7. KLONOPIN [Concomitant]
     Active Substance: CLONAZEPAM
  8. PRILOSEC [Concomitant]
     Active Substance: OMEPRAZOLE MAGNESIUM
  9. DILANTIN [Concomitant]
     Active Substance: PHENYTOIN

REACTIONS (1)
  - Pain in jaw [Not Recovered/Not Resolved]

NARRATIVE: CASE EVENT DATE: 200712
